FAERS Safety Report 4832680-0 (Version None)
Quarter: 2005Q4

REPORT INFORMATION
  Report Type: 
  Country: None (occurrence: None)
  Receive Date: 20051117
  Receipt Date: 20051117
  Transmission Date: 20060501
  Serious: Yes (Disabling)
  Sender: FDA-Public Use
  Company Number: None

PATIENT
  Age: 88 Year
  Sex: Male
  Weight: 84.8226 kg

DRUGS (14)
  1. TAMIFLU [Suspect]
     Indication: INFLUENZA IMMUNISATION
     Dosage: 75MG   BID  PO
     Route: 048
     Dates: start: 20050215, end: 20050220
  2. TAMIFLU [Suspect]
     Indication: INFLUENZA IMMUNISATION
     Dosage: 75MG  DAILY  PO
     Route: 048
     Dates: start: 20050221, end: 20050301
  3. ALBUTEROL [Concomitant]
  4. ACETAMINOPHEN [Concomitant]
  5. CITALOPRAM [Concomitant]
  6. CYANOCOBALAMIN [Concomitant]
  7. FERROUS SULFATE TAB [Concomitant]
  8. FUROSEMIDE [Concomitant]
  9. POTASSIUM CHLORIDE [Concomitant]
  10. RANITIDINE [Concomitant]
  11. MULTI-VITAMINS [Concomitant]
  12. MILK OF MAGNESIA TAB [Concomitant]
  13. NITROGLYCERIN [Concomitant]
  14. PROMETHAZINE [Concomitant]

REACTIONS (3)
  - INTERNATIONAL NORMALISED RATIO INCREASED [None]
  - NAUSEA [None]
  - VOMITING [None]
